FAERS Safety Report 8966314 (Version 1)
Quarter: 2012Q4

REPORT INFORMATION
  Report Type: 
  Country: FR (occurrence: FR)
  Receive Date: 20121216
  Receipt Date: 20121216
  Transmission Date: 20130627
  Serious: Yes (Other)
  Sender: FDA-Public Use
  Company Number: FR-BRISTOL-MYERS SQUIBB COMPANY-17196064

PATIENT
  Age: 60 Year
  Sex: Female

DRUGS (1)
  1. TAXOL INJ [Suspect]

REACTIONS (1)
  - Macular oedema [Unknown]
